FAERS Safety Report 8882971 (Version 1)
Quarter: 2012Q4

REPORT INFORMATION
  Report Type: 
  Country: US (occurrence: US)
  Receive Date: 20121102
  Receipt Date: 20121102
  Transmission Date: 20130627
  Serious: No
  Sender: FDA-Public Use
  Company Number: US-ASTRAZENECA-2011SE72812

PATIENT
  Sex: Female

DRUGS (4)
  1. CRESTOR [Suspect]
     Indication: BLOOD CHOLESTEROL INCREASED
     Route: 048
     Dates: start: 201110
  2. CRESTOR [Suspect]
     Indication: BLOOD CHOLESTEROL INCREASED
     Dosage: 5 MG ONE TO THREE TIMES A WEEK
     Route: 048
     Dates: start: 201110
  3. XANAX [Concomitant]
  4. ANTIPSYCHOTIC MEDICATION [Concomitant]

REACTIONS (2)
  - Alopecia [Recovering/Resolving]
  - Inappropriate schedule of drug administration [Unknown]
